FAERS Safety Report 7631513-7 (Version None)
Quarter: 2011Q3

REPORT INFORMATION
  Report Type: 
  Country: None (occurrence: None)
  Receive Date: 20110725
  Receipt Date: 20110720
  Transmission Date: 20111222
  Serious: Yes (Other)
  Sender: FDA-Public Use
  Company Number: FR-BRISTOL-MYERS SQUIBB COMPANY-15644099

PATIENT
  Age: 60 Year
  Sex: Male

DRUGS (5)
  1. STALEVO 100 [Suspect]
  2. METFORMIN HCL [Suspect]
  3. REQUIP [Suspect]
     Dosage: PREVIOUSLY DAILY DOSE21MG. DOSE REDUCED TO 15MG/DAY
  4. AMANTADINE HCL [Suspect]
  5. MODOPAR [Suspect]

REACTIONS (3)
  - SUDDEN ONSET OF SLEEP [None]
  - HYPOTONIA [None]
  - SOMNOLENCE [None]
